FAERS Safety Report 15812083 (Version 2)
Quarter: 2019Q1

REPORT INFORMATION
  Report Type: Report from Study
  Country: US (occurrence: US)
  Receive Date: 20190111
  Receipt Date: 20190220
  Transmission Date: 20190417
  Serious: No
  Sender: FDA-Public Use
  Company Number: PHEH2019US001219

PATIENT
  Sex: Female
  Weight: 184.13 kg

DRUGS (3)
  1. CLOBETASOL [Concomitant]
     Active Substance: CLOBETASOL
     Indication: PSORIASIS
     Dosage: 0.05 %, UNK
     Route: 061
     Dates: start: 20180212
  2. DERMA SMOOTHE [Concomitant]
     Indication: PSORIASIS
     Dosage: UNK UNK, QW
     Route: 061
     Dates: start: 20180212
  3. COSENTYX [Suspect]
     Active Substance: SECUKINUMAB
     Indication: PSORIASIS
     Dosage: UNK UNK, Q4W
     Route: 065
     Dates: start: 20180212

REACTIONS (3)
  - Skin plaque [Unknown]
  - Psoriasis [Unknown]
  - Inappropriate schedule of product administration [Unknown]
